FAERS Safety Report 9652796 (Version 1)
Quarter: 2013Q4

REPORT INFORMATION
  Report Type: Spontaneous
  Country: US (occurrence: US)
  Receive Date: 20131029
  Receipt Date: 20131029
  Transmission Date: 20140711
  Serious: No
  Sender: FDA-Public Use
  Company Number: US-BIOGENIDEC-2013BI077406

PATIENT
  Age: 54 Year
  Sex: Male

DRUGS (9)
  1. TECFIDERA [Suspect]
     Indication: MULTIPLE SCLEROSIS
     Route: 048
     Dates: start: 20130701
  2. BUPROPRION [Concomitant]
  3. BACLOFEN [Concomitant]
  4. POTASSIUM [Concomitant]
  5. ALLOPURINOL [Concomitant]
  6. HCTZ [Concomitant]
  7. ASPIRIN [Concomitant]
  8. BENICAR [Concomitant]
  9. NORVASC [Concomitant]

REACTIONS (1)
  - Flushing [Unknown]
